FAERS Safety Report 18251354 (Version 3)
Quarter: 2022Q4

REPORT INFORMATION
  Report Type: Spontaneous
  Country: TR (occurrence: TR)
  Receive Date: 20200910
  Receipt Date: 20221216
  Transmission Date: 20230113
  Serious: Yes (Other)
  Sender: FDA-Public Use
  Company Number: TR-SUN PHARMACEUTICAL INDUSTRIES LTD-2020R1-259631

PATIENT
  Sex: Male
  Weight: 2.75 kg

DRUGS (4)
  1. TOPIRAMATE [Suspect]
     Active Substance: TOPIRAMATE
     Indication: Seizure
     Dosage: 1 MILLIGRAM/KILOGRAM, DAILY
     Route: 065
  2. TOPIRAMATE [Suspect]
     Active Substance: TOPIRAMATE
     Dosage: 2 MILLIGRAM/KILOGRAM, DAILY
     Route: 065
  3. TOPIRAMATE [Suspect]
     Active Substance: TOPIRAMATE
     Dosage: 3 MILLIGRAM/KILOGRAM, DAILY
     Route: 065
  4. TOPIRAMATE [Suspect]
     Active Substance: TOPIRAMATE
     Dosage: 4 MILLIGRAM/KILOGRAM, DAILY
     Route: 065

REACTIONS (1)
  - Necrotising colitis [Recovered/Resolved]
